FAERS Safety Report 13798208 (Version 3)
Quarter: 2018Q1

REPORT INFORMATION
  Report Type: Report from Study
  Country: IT (occurrence: IT)
  Receive Date: 20170727
  Receipt Date: 20180316
  Transmission Date: 20180508
  Serious: Yes (Other)
  Sender: FDA-Public Use
  Company Number: IT-ROCHE-1968466

PATIENT

DRUGS (4)
  1. SULFAMETHOXAZOLE/TRIMETHOPRIM [Concomitant]
     Active Substance: SULFAMETHOXAZOLE\TRIMETHOPRIM
     Indication: PNEUMOCYSTIS JIROVECII PNEUMONIA
  2. RITUXIMAB. [Suspect]
     Active Substance: RITUXIMAB
     Indication: B-CELL LYMPHOMA
     Dosage: ON DAY 1
     Route: 042
  3. RITUXIMAB. [Suspect]
     Active Substance: RITUXIMAB
     Indication: B-CELL LYMPHOMA
     Dosage: ON DAY 1
     Route: 058
  4. BENDAMUSTINE [Suspect]
     Active Substance: BENDAMUSTINE
     Indication: B-CELL LYMPHOMA
     Dosage: 70 OR 90 MG/SQM ON DAYS 1, 2
     Route: 042

REACTIONS (9)
  - Varicella zoster virus infection [Unknown]
  - Pneumonia bacterial [Unknown]
  - Lymphopenia [Unknown]
  - Infection [Unknown]
  - Lung neoplasm malignant [Unknown]
  - Cytomegalovirus infection [Unknown]
  - Febrile neutropenia [Unknown]
  - Neutropenia [Unknown]
  - Prostate cancer [Unknown]
